FAERS Safety Report 18455263 (Version 6)
Quarter: 2021Q3

REPORT INFORMATION
  Report Type: Report from Study
  Country: US (occurrence: US)
  Receive Date: 20201102
  Receipt Date: 20210713
  Transmission Date: 20211014
  Serious: Yes (Hospitalization)
  Sender: FDA-Public Use
  Company Number: US-EISAI MEDICAL RESEARCH-EC-2020-081290

PATIENT
  Age: 66 Year
  Sex: Female

DRUGS (13)
  1. LOSARTAN. [Concomitant]
     Active Substance: LOSARTAN
     Indication: HYPERTENSION
     Route: 048
  2. LENVIMA [Suspect]
     Active Substance: LENVATINIB
     Route: 048
     Dates: start: 20201112, end: 20201206
  3. KEYTRUDA [Suspect]
     Active Substance: PEMBROLIZUMAB
     Indication: ENDOMETRIAL CANCER
     Route: 042
     Dates: start: 20200915
  4. LENVIMA [Suspect]
     Active Substance: LENVATINIB
     Indication: ENDOMETRIAL CANCER
     Route: 048
     Dates: start: 20200908, end: 2020
  5. LENVIMA [Suspect]
     Active Substance: LENVATINIB
     Route: 048
     Dates: start: 20201008, end: 202010
  6. SALT [Concomitant]
     Active Substance: SODIUM CHLORIDE
  7. PREVYMIS [Concomitant]
     Active Substance: LETERMOVIR
  8. LENVIMA [Suspect]
     Active Substance: LENVATINIB
     Route: 048
     Dates: start: 202010, end: 2020
  9. LENVIMA [Suspect]
     Active Substance: LENVATINIB
     Route: 048
     Dates: start: 20210514
  10. LENVIMA [Suspect]
     Active Substance: LENVATINIB
     Route: 048
     Dates: start: 20201207, end: 2021
  11. NORTRIPTYLINE [Concomitant]
     Active Substance: NORTRIPTYLINE
     Indication: HEADACHE
     Route: 048
  12. RENFLEXIS [Concomitant]
     Active Substance: INFLIXIMAB-ABDA
  13. LENVIMA [Suspect]
     Active Substance: LENVATINIB
     Route: 048
     Dates: start: 202101, end: 20210513

REACTIONS (10)
  - Insomnia [Unknown]
  - Memory impairment [Unknown]
  - Altered visual depth perception [Unknown]
  - Headache [Not Recovered/Not Resolved]
  - Migraine [Unknown]
  - Dysphonia [Unknown]
  - Acne [Unknown]
  - Intentional product use issue [Unknown]
  - Blood sodium decreased [Recovered/Resolved]
  - Hypertension [Not Recovered/Not Resolved]

NARRATIVE: CASE EVENT DATE: 2020
